FAERS Safety Report 13909678 (Version 2)
Quarter: 2017Q4

REPORT INFORMATION
  Report Type: Spontaneous
  Country: US (occurrence: US)
  Receive Date: 20170828
  Receipt Date: 20171009
  Transmission Date: 20180320
  Serious: No
  Sender: FDA-Public Use
  Company Number: US-AMGEN-USASP2017127837

PATIENT
  Age: 64 Year
  Sex: Female

DRUGS (2)
  1. AMLODIPINE [Suspect]
     Active Substance: AMLODIPINE BESYLATE
     Indication: PRODUCT USED FOR UNKNOWN INDICATION
     Dosage: 5 MG, UNK
     Route: 065
  2. ENBREL [Suspect]
     Active Substance: ETANERCEPT
     Indication: RHEUMATOID ARTHRITIS
     Dosage: 50 MG, QWK
     Route: 058
     Dates: start: 20160506, end: 20170421

REACTIONS (16)
  - Fatigue [Unknown]
  - Dyspnoea [Unknown]
  - Drug effect decreased [Unknown]
  - Back pain [Unknown]
  - Joint stiffness [Unknown]
  - Pain [Unknown]
  - Pain in extremity [Unknown]
  - Insomnia [Unknown]
  - General physical condition abnormal [Unknown]
  - Blood pressure increased [Unknown]
  - Rash [Unknown]
  - Anxiety [Unknown]
  - Arthralgia [Unknown]
  - Vision blurred [Unknown]
  - Depression [Unknown]
  - Breast pain [Not Recovered/Not Resolved]

NARRATIVE: CASE EVENT DATE: 201708
